FAERS Safety Report 25654037 (Version 1)
Quarter: 2025Q3

REPORT INFORMATION
  Report Type: Spontaneous
  Country: US (occurrence: US)
  Receive Date: 20250807
  Receipt Date: 20250807
  Transmission Date: 20251021
  Serious: No
  Sender: ITALFARMACO SPA
  Company Number: US-ITALFARMACO SPA-2182034

PATIENT
  Age: 62 Year
  Sex: Male
  Weight: 73.469 kg

DRUGS (9)
  1. TIGLUTIK [Suspect]
     Active Substance: RILUZOLE
     Indication: Amyotrophic lateral sclerosis
     Dates: start: 20241012
  2. NORVASC [Concomitant]
     Active Substance: AMLODIPINE BESYLATE
  3. XARELTO [Concomitant]
     Active Substance: RIVAROXABAN
  4. RADICAVA [Concomitant]
     Active Substance: EDARAVONE
  5. JEVITY 1.2 CAL [Concomitant]
  6. HYDROCHLOROTHIAZIDE [Concomitant]
     Active Substance: HYDROCHLOROTHIAZIDE
  7. HUMIRA [Concomitant]
     Active Substance: ADALIMUMAB
  8. COREG [Concomitant]
     Active Substance: CARVEDILOL
  9. ATROPINE [Concomitant]
     Active Substance: ATROPINE

REACTIONS (3)
  - Lip swelling [Recovering/Resolving]
  - Paraesthesia oral [Recovering/Resolving]
  - Hypoaesthesia oral [Recovering/Resolving]

NARRATIVE: CASE EVENT DATE: 20241012
